FAERS Safety Report 6364254-7 (Version None)
Quarter: 2009Q3

REPORT INFORMATION
  Report Type: 
  Country: None (occurrence: None)
  Receive Date: 20090919
  Receipt Date: 20090818
  Transmission Date: 20100115
  Serious: No
  Sender: FDA-Public Use
  Company Number: US-ABBOTT-09P-163-0580527-00

PATIENT
  Sex: Male
  Weight: 60.836 kg

DRUGS (2)
  1. HUMIRA [Suspect]
     Indication: RHEUMATOID ARTHRITIS
     Dates: start: 20040602
  2. ALLERGY NASAL SPRAY [Concomitant]
     Indication: HYPERSENSITIVITY

REACTIONS (3)
  - HEADACHE [None]
  - RHINORRHOEA [None]
  - SINUS HEADACHE [None]
